FAERS Safety Report 23549035 (Version 1)
Quarter: 2024Q1

REPORT INFORMATION
  Report Type: Spontaneous
  Country: NO (occurrence: NO)
  Receive Date: 20240221
  Receipt Date: 20240221
  Transmission Date: 20240410
  Serious: Yes (Life-Threatening, Hospitalization, Other)
  Sender: FDA-Public Use
  Company Number: None

PATIENT
  Age: 65 Year
  Sex: Female

DRUGS (1)
  1. CLINDAMYCIN HYDROCHLORIDE [Suspect]
     Active Substance: CLINDAMYCIN HYDROCHLORIDE
     Indication: Post procedural infection
     Dosage: UNK
     Route: 048
     Dates: start: 202312

REACTIONS (1)
  - Poisoning [Recovered/Resolved with Sequelae]

NARRATIVE: CASE EVENT DATE: 20231201
